FAERS Safety Report 8234312-0 (Version None)
Quarter: 2012Q1

REPORT INFORMATION
  Report Type: 
  Country: None (occurrence: None)
  Receive Date: 20120326
  Receipt Date: 20120316
  Transmission Date: 20120608
  Serious: Yes (Other)
  Sender: FDA-Public Use
  Company Number: RU-NOVOPROD-345214

PATIENT
  Age: 44 Year
  Sex: Male
  Weight: 128 kg

DRUGS (6)
  1. LOSARTAN POTASSIUM [Concomitant]
     Indication: HYPERTENSION
     Dosage: 150 MG, QD
     Route: 048
  2. VICTOZA [Suspect]
     Indication: TYPE 2 DIABETES MELLITUS
     Dosage: 0.6 MG, QD
     Route: 058
     Dates: start: 20120214, end: 20120215
  3. GLUCOPHAGE [Concomitant]
     Indication: TYPE 2 DIABETES MELLITUS
     Dosage: 2000 MG, QD
     Route: 048
  4. VICTOZA [Suspect]
     Indication: OBESITY
  5. TENORIC [Concomitant]
     Indication: HYPERTENSION
     Dosage: 12.5/50 MG, QD
     Route: 048
  6. TRICOR [Concomitant]
     Dosage: 45 MG, QD
     Route: 065

REACTIONS (3)
  - HEADACHE [None]
  - HYPERSENSITIVITY [None]
  - CONVULSION [None]
